FAERS Safety Report 5563425-7 (Version None)
Quarter: 2007Q4

REPORT INFORMATION
  Report Type: 
  Country: None (occurrence: None)
  Receive Date: 20071217
  Receipt Date: 20070515
  Transmission Date: 20080405
  Serious: No
  Sender: FDA-Public Use
  Company Number: US-ASTRAZENECA-2007UW12022

PATIENT
  Age: 65 Year
  Sex: Male
  Weight: 86.2 kg

DRUGS (17)
  1. CRESTOR [Suspect]
     Indication: BLOOD CHOLESTEROL INCREASED
     Route: 048
  2. CRESTOR [Suspect]
     Route: 048
  3. CRESTOR [Suspect]
     Route: 048
  4. CRESTOR [Suspect]
     Route: 048
  5. METFORMIN HCL [Concomitant]
  6. JANUVIA [Concomitant]
  7. BENICAR HCT [Concomitant]
  8. FUROSEMIDE [Concomitant]
  9. POTASSIUM CHLORIDE [Concomitant]
  10. PROTONIX [Concomitant]
  11. TERAZOSIN HCL [Concomitant]
  12. MULTI-VITAMIN [Concomitant]
  13. ASCORBIC ACID [Concomitant]
  14. VITAMIN E [Concomitant]
  15. VITAMIN B COMPLEX CAP [Concomitant]
  16. COENZYME Q10 [Concomitant]
  17. TRAMADOL ER [Concomitant]

REACTIONS (3)
  - BACK PAIN [None]
  - BLOOD CHOLESTEROL INCREASED [None]
  - GOUT [None]
